FAERS Safety Report 23770319 (Version 2)
Quarter: 2024Q3

REPORT INFORMATION
  Report Type: Spontaneous
  Country: US (occurrence: US)
  Receive Date: 20240422
  Receipt Date: 20240807
  Transmission Date: 20241017
  Serious: No
  Sender: SANOFI AVENTIS
  Company Number: US-SA-SAC20240416000899

PATIENT
  Age: 20 Year
  Sex: Male

DRUGS (2)
  1. DUPIXENT [Suspect]
     Active Substance: DUPILUMAB
     Indication: Dermatitis atopic
     Dosage: 300 MG, QOW
     Route: 058
  2. DUPIXENT [Suspect]
     Active Substance: DUPILUMAB
     Dosage: 300 MG, Q4W
     Route: 058

REACTIONS (8)
  - Initial insomnia [Unknown]
  - Urticaria [Unknown]
  - Eczema [Unknown]
  - Rash erythematous [Unknown]
  - Dry skin [Unknown]
  - Pruritus [Unknown]
  - Conjunctivitis [Unknown]
  - Inappropriate schedule of product administration [Unknown]
